FAERS Safety Report 4365898-4 (Version None)
Quarter: 2004Q2

REPORT INFORMATION
  Report Type: 
  Country: None (occurrence: None)
  Receive Date: 20040521
  Receipt Date: 20040514
  Transmission Date: 20050107
  Serious: Yes (Death)
  Sender: FDA-Public Use
  Company Number: 2004CG00120

PATIENT
  Age: 55 Year
  Sex: Female
  Weight: 90 kg

DRUGS (4)
  1. CRESTOR [Suspect]
     Indication: DYSLIPIDAEMIA
     Dosage: 10 MG QD PO
     Route: 048
     Dates: start: 20031222
  2. ASPEGIC 325 [Concomitant]
  3. FLECAINE [Concomitant]
  4. ATACAND [Concomitant]

REACTIONS (4)
  - ARRHYTHMIA [None]
  - ASPHYXIA [None]
  - PULMONARY OEDEMA [None]
  - SUDDEN DEATH [None]
